FAERS Safety Report 5775517-8 (Version None)
Quarter: 2008Q2

REPORT INFORMATION
  Report Type: 
  Country: None (occurrence: None)
  Receive Date: 20080617
  Receipt Date: 20080611
  Transmission Date: 20081010
  Serious: Yes (Other)
  Sender: FDA-Public Use
  Company Number: FR-BRISTOL-MYERS SQUIBB COMPANY-14156418

PATIENT
  Age: 58 Year
  Sex: Female
  Weight: 65 kg

DRUGS (3)
  1. ORENCIA [Suspect]
     Indication: RHEUMATOID ARTHRITIS
     Dosage: CYCLE:6
     Route: 042
     Dates: start: 20071112, end: 20080421
  2. METHOTREXATE [Suspect]
     Indication: RHEUMATOID ARTHRITIS
     Route: 048
     Dates: start: 19960901, end: 20080311
  3. CORTANCYL [Concomitant]
     Indication: POLYARTHRITIS
     Route: 048
     Dates: start: 19950101

REACTIONS (1)
  - LYMPHOPENIA [None]
